FAERS Safety Report 11422824 (Version 1)
Quarter: 2015Q3

REPORT INFORMATION
  Report Type: Spontaneous
  Country: US (occurrence: None)
  Receive Date: 20150826
  Receipt Date: 20150826
  Transmission Date: 20151125
  Serious: Yes (Other)
  Sender: FDA-Public Use
  Company Number: None

PATIENT
  Age: 16 Year
  Sex: Male
  Weight: 72.58 kg

DRUGS (2)
  1. TROPICAMIDE. [Suspect]
     Active Substance: TROPICAMIDE
     Indication: OPHTHALMOLOGICAL EXAMINATION
  2. ADVIL [Concomitant]
     Active Substance: IBUPROFEN

REACTIONS (6)
  - Fatigue [None]
  - Nausea [None]
  - Headache [None]
  - Seizure [None]
  - Syncope [None]
  - Somnolence [None]

NARRATIVE: CASE EVENT DATE: 20150824
